FAERS Safety Report 20438041 (Version 2)
Quarter: 2022Q1

REPORT INFORMATION
  Report Type: Spontaneous
  Country: US (occurrence: US)
  Receive Date: 20220207
  Receipt Date: 20220211
  Transmission Date: 20220424
  Serious: No
  Sender: FDA-Public Use
  Company Number: US-LUPIN PHARMACEUTICALS INC.-2022-01567

PATIENT
  Age: 92 Year
  Sex: Male

DRUGS (1)
  1. SIMVASTATIN [Suspect]
     Active Substance: SIMVASTATIN
     Indication: Product used for unknown indication
     Dosage: 10 MILLIGRAM, QD (1 TIMES PER DAY)
     Route: 048

REACTIONS (3)
  - Product dose omission issue [Unknown]
  - Therapy interrupted [Unknown]
  - No adverse event [Unknown]
